FAERS Safety Report 8858558 (Version 1)
Quarter: 2012Q4

REPORT INFORMATION
  Report Type: 
  Country: US (occurrence: US)
  Receive Date: 20121024
  Receipt Date: 20121024
  Transmission Date: 20130627
  Serious: Yes (Other)
  Sender: FDA-Public Use
  Company Number: US-PFIZER INC-2012260863

PATIENT
  Age: 87 Year
  Sex: Female
  Weight: 46.26 kg

DRUGS (5)
  1. TOVIAZ [Suspect]
     Indication: BLADDER DISORDER
     Dosage: 4 mg, daily
     Dates: start: 201209, end: 201210
  2. LATANOPROST [Concomitant]
     Indication: MACULAR DEGENERATION
     Dosage: UNK
     Route: 047
  3. LATANOPROST [Concomitant]
     Indication: GLAUCOMA
  4. LUMIGAN [Concomitant]
     Indication: MACULAR DEGENERATION
     Dosage: UNK
     Route: 047
  5. LUMIGAN [Concomitant]
     Indication: GLAUCOMA

REACTIONS (2)
  - Visual impairment [Not Recovered/Not Resolved]
  - Vision blurred [Not Recovered/Not Resolved]
